FAERS Safety Report 6408148-7 (Version None)
Quarter: 2009Q4

REPORT INFORMATION
  Report Type: 
  Country: None (occurrence: None)
  Receive Date: 20091021
  Receipt Date: 20091009
  Transmission Date: 20100525
  Serious: Yes (Other)
  Sender: FDA-Public Use
  Company Number: US-WYE-H11529909

PATIENT
  Sex: Female

DRUGS (1)
  1. EFFEXOR XR [Suspect]
     Route: 048
     Dates: start: 20090101, end: 20090101

REACTIONS (3)
  - HEART DISEASE CONGENITAL [None]
  - HYPERTENSION [None]
  - MYOCARDIAL INFARCTION [None]
